FAERS Safety Report 18377491 (Version 2)
Quarter: 2020Q4

REPORT INFORMATION
  Report Type: Spontaneous
  Country: ES (occurrence: ES)
  Receive Date: 20201013
  Receipt Date: 20201221
  Transmission Date: 20210114
  Serious: Yes (Hospitalization)
  Sender: FDA-Public Use
  Company Number: ES-JNJFOC-20201004218

PATIENT
  Age: 41 Year
  Sex: Female

DRUGS (5)
  1. BECLOMETHASONE DIPROPIONATE        /00212602/ [Interacting]
     Active Substance: BECLOMETHASONE DIPROPIONATE
     Route: 042
  2. BECLOMETHASONE DIPROPIONATE        /00212602/ [Interacting]
     Active Substance: BECLOMETHASONE DIPROPIONATE
  3. REZOLSTA [Suspect]
     Active Substance: COBICISTAT\DARUNAVIR ETHANOLATE
     Indication: HIV INFECTION
     Dosage: 150/800 MG
     Route: 048
  4. BECLOMETHASONE DIPROPIONATE        /00212602/ [Interacting]
     Active Substance: BECLOMETHASONE DIPROPIONATE
     Indication: RASH
     Route: 061
  5. BECLOMETHASONE DIPROPIONATE        /00212602/ [Interacting]
     Active Substance: BECLOMETHASONE DIPROPIONATE
     Route: 030

REACTIONS (3)
  - Cushing^s syndrome [Recovering/Resolving]
  - Secondary adrenocortical insufficiency [Not Recovered/Not Resolved]
  - Drug interaction [Recovering/Resolving]
